FAERS Safety Report 5306532-6 (Version None)
Quarter: 2007Q2

REPORT INFORMATION
  Report Type: 
  Country: None (occurrence: None)
  Receive Date: 20070424
  Receipt Date: 20070413
  Transmission Date: 20071010
  Serious: Yes (Other)
  Sender: FDA-Public Use
  Company Number: US-PFIZER INC-2007031082

PATIENT
  Sex: Male
  Weight: 73.9 kg

DRUGS (7)
  1. LYRICA [Suspect]
     Indication: NEURALGIA
  2. HYDROCODONE [Concomitant]
  3. XANAX [Concomitant]
  4. ALBUTEROL [Concomitant]
  5. DIAZEPAM [Concomitant]
  6. PULMICORT [Concomitant]
  7. OXYGEN [Concomitant]

REACTIONS (1)
  - CONVULSION [None]
